FAERS Safety Report 14881032 (Version 2)
Quarter: 2018Q2

REPORT INFORMATION
  Report Type: Report from Study
  Country: US (occurrence: US)
  Receive Date: 20180511
  Receipt Date: 20180524
  Transmission Date: 20180711
  Serious: Yes (Death, Hospitalization, Other)
  Sender: FDA-Public Use
  Company Number: US-GILEAD-2018-0335806

PATIENT
  Age: 60 Year
  Sex: Female
  Weight: 41.3 kg

DRUGS (17)
  1. AZATHIOPRINE. [Concomitant]
     Active Substance: AZATHIOPRINE
  2. REMERON [Concomitant]
     Active Substance: MIRTAZAPINE
  3. LOSARTAN POTASSIUM. [Concomitant]
     Active Substance: LOSARTAN POTASSIUM
  4. PAXIL [Concomitant]
     Active Substance: PAROXETINE HYDROCHLORIDE
  5. MARINOL                            /00003301/ [Concomitant]
     Active Substance: ALLOPURINOL
  6. DELTASONE [Concomitant]
     Active Substance: PREDNISONE
  7. IMURAN [Concomitant]
     Active Substance: AZATHIOPRINE
  8. ALLEGRA [Concomitant]
     Active Substance: FEXOFENADINE HYDROCHLORIDE
  9. LISINOPRIL. [Concomitant]
     Active Substance: LISINOPRIL
  10. FLONASE                            /00908302/ [Concomitant]
     Active Substance: MOMETASONE FUROATE
  11. AMBRISENTAN [Suspect]
     Active Substance: AMBRISENTAN
     Indication: PULMONARY ARTERIAL HYPERTENSION
     Dosage: 10 MG, QD
     Route: 048
     Dates: start: 20171229
  12. MORPHINE [Concomitant]
     Active Substance: MORPHINE
  13. ZINCATE [Concomitant]
  14. VITAMIN D                          /00107901/ [Concomitant]
     Active Substance: ERGOCALCIFEROL
  15. TYLENOL [Concomitant]
     Active Substance: ACETAMINOPHEN
  16. LIQUITEARS [Concomitant]
     Active Substance: POLYVINYL ALCOHOL
  17. VITAMIN D2 [Concomitant]
     Active Substance: ERGOCALCIFEROL

REACTIONS (11)
  - Decreased appetite [Unknown]
  - Leukopenia [Recovered/Resolved]
  - Dyspnoea [Unknown]
  - Musculoskeletal pain [Unknown]
  - Malnutrition [Unknown]
  - Death [Fatal]
  - Acute respiratory failure [Unknown]
  - Oxygen saturation decreased [Unknown]
  - Bronchiectasis [Unknown]
  - Pneumothorax [Unknown]
  - Asthenia [Unknown]

NARRATIVE: CASE EVENT DATE: 20180312
